FAERS Safety Report 9473549 (Version 2)
Quarter: 2014Q3

REPORT INFORMATION
  Report Type: Spontaneous
  Country: US (occurrence: US)
  Receive Date: 20130823
  Receipt Date: 20140827
  Transmission Date: 20150326
  Serious: No
  Sender: FDA-Public Use
  Company Number: US-GALDERMA-US13001975

PATIENT
  Age: 66 Year
  Sex: Female

DRUGS (6)
  1. BABY ASPIRIN [Concomitant]
     Active Substance: ASPIRIN
  2. METOPROLOL [Concomitant]
     Active Substance: METOPROLOL
     Indication: MITRAL VALVE PROLAPSE
     Route: 048
  3. METROGEL [Suspect]
     Active Substance: METRONIDAZOLE
     Indication: ROSACEA
     Route: 061
     Dates: start: 20130521, end: 20130526
  4. METROGEL [Suspect]
     Active Substance: METRONIDAZOLE
     Route: 061
     Dates: start: 20130506, end: 20130506
  5. EQUATE INTENSIVE THERAPY LOTION FOR DRY SKIN [Concomitant]
     Indication: DRY SKIN PROPHYLAXIS
     Route: 061
  6. UNKNOWN HYPO-ALLERGENIC LIQUID SOAP [Concomitant]
     Indication: THERAPEUTIC SKIN CARE TOPICAL
     Route: 061

REACTIONS (3)
  - Skin burning sensation [Recovered/Resolved]
  - Erythema [Recovered/Resolved]
  - Rash erythematous [Not Recovered/Not Resolved]

NARRATIVE: CASE EVENT DATE: 20130522
